FAERS Safety Report 7235113-2 (Version None)
Quarter: 2011Q1

REPORT INFORMATION
  Report Type: 
  Country: None (occurrence: None)
  Receive Date: 20110114
  Receipt Date: 20110114
  Transmission Date: 20110831
  Serious: Yes (Hospitalization)
  Sender: FDA-Public Use
  Company Number: None

PATIENT
  Age: 62 Year
  Sex: Male

DRUGS (4)
  1. CLOPIDOGREL [Suspect]
     Indication: CORONARY ARTERY DISEASE
     Dosage: 1 TAB EVERY DAY PO
     Route: 048
     Dates: start: 20091123, end: 20110105
  2. CLOPIDOGREL [Suspect]
     Indication: CORONARY ARTERIAL STENT INSERTION
     Dosage: 1 TAB EVERY DAY PO
     Route: 048
     Dates: start: 20091123, end: 20110105
  3. WARFARIN [Suspect]
     Indication: CORONARY ARTERIAL STENT INSERTION
     Dates: start: 20091123
  4. WARFARIN [Suspect]
     Indication: ATRIAL FIBRILLATION
     Dates: start: 20091123

REACTIONS (7)
  - HAEMATOCRIT DECREASED [None]
  - OCCULT BLOOD POSITIVE [None]
  - ASTHENIA [None]
  - GASTROINTESTINAL HAEMORRHAGE [None]
  - DIVERTICULUM [None]
  - FATIGUE [None]
  - HAEMOGLOBIN DECREASED [None]
